FAERS Safety Report 16731449 (Version 1)
Quarter: 2019Q3

REPORT INFORMATION
  Report Type: Spontaneous
  Country: IT (occurrence: IT)
  Receive Date: 20190822
  Receipt Date: 20190822
  Transmission Date: 20191005
  Serious: Yes (Other)
  Sender: FDA-Public Use
  Company Number: IT-JNJFOC-20151208524

PATIENT

DRUGS (1)
  1. REMICADE [Suspect]
     Active Substance: INFLIXIMAB
     Indication: SPONDYLITIS
     Route: 042

REACTIONS (7)
  - Bacterial infection [Unknown]
  - Bronchitis [Unknown]
  - Skin infection [Unknown]
  - Pneumonia [Unknown]
  - Fungal infection [Unknown]
  - Viral infection [Unknown]
  - Herpes zoster [Unknown]
